FAERS Safety Report 6252264-X (Version None)
Quarter: 2009Q2

REPORT INFORMATION
  Report Type: 
  Country: None (occurrence: None)
  Receive Date: 20090629
  Receipt Date: 20090617
  Transmission Date: 20091009
  Serious: Yes (Hospitalization)
  Sender: FDA-Public Use
  Company Number: 1-18884471

PATIENT
  Age: 6 Year

DRUGS (2)
  1. IBUPROFEN [Suspect]
     Indication: PATENT DUCTUS ARTERIOSUS
     Dosage: 10,5,5 MG/KG Q 24HR,
  2. ALBUMIN (HUMAN) [Concomitant]

REACTIONS (3)
  - BLOOD BILIRUBIN INCREASED [None]
  - NEURODEVELOPMENTAL DISORDER [None]
  - TYMPANOMETRY ABNORMAL [None]
